FAERS Safety Report 6844815-9 (Version None)
Quarter: 2010Q3

REPORT INFORMATION
  Report Type: 
  Country: None (occurrence: None)
  Receive Date: 20100715
  Receipt Date: 20100708
  Transmission Date: 20110219
  Serious: Yes (Hospitalization)
  Sender: FDA-Public Use
  Company Number: FR-PFIZER INC-2010086250

PATIENT
  Age: 14 Year
  Sex: Female

DRUGS (4)
  1. RELPAX [Suspect]
     Dosage: UNK
     Route: 048
     Dates: start: 20100608, end: 20100608
  2. HYDROXYZINE HCL [Suspect]
     Dosage: UNK
     Route: 048
     Dates: start: 20100608, end: 20100608
  3. DOLIPRANE [Suspect]
     Dosage: UNK
     Route: 048
     Dates: start: 20100608, end: 20100608
  4. TERCIAN [Suspect]
     Dosage: UNK
     Route: 048
     Dates: start: 20100608, end: 20100608

REACTIONS (4)
  - ORTHOSTATIC HYPOTENSION [None]
  - PALPITATIONS [None]
  - POISONING [None]
  - SOMNOLENCE [None]
